FAERS Safety Report 20601687 (Version 1)
Quarter: 2022Q1

REPORT INFORMATION
  Report Type: Spontaneous
  Country: SK (occurrence: SK)
  Receive Date: 20220316
  Receipt Date: 20220316
  Transmission Date: 20220424
  Serious: Yes (Hospitalization)
  Sender: FDA-Public Use
  Company Number: None

PATIENT
  Age: 78 Year
  Sex: Female

DRUGS (16)
  1. MOLNUPIRAVIR [Suspect]
     Active Substance: MOLNUPIRAVIR
     Indication: COVID-19
     Dosage: 200MG: 4-0-4
     Dates: start: 20220215, end: 20220216
  2. INDAPAMIDE [Concomitant]
     Active Substance: INDAPAMIDE
  3. TISERCIN [LEVOMEPROMAZINE] [Concomitant]
  4. NOVALGIN (METAMIZOLE SODIUM) [Concomitant]
     Active Substance: METAMIZOLE SODIUM
  5. DIETARY SUPPLEMENT\HERBALS\MILK THISTLE [Concomitant]
     Active Substance: DIETARY SUPPLEMENT\HERBALS\MILK THISTLE
  6. FLUCONAZOLE [Concomitant]
     Active Substance: FLUCONAZOLE
  7. CAPTOPRIL [Concomitant]
     Active Substance: CAPTOPRIL
  8. QUETIAPINE FUMARATE [Concomitant]
     Active Substance: QUETIAPINE FUMARATE
  9. ZINC OROTATE [Concomitant]
     Active Substance: ZINC OROTATE
  10. HALOPERIDOL [Concomitant]
     Active Substance: HALOPERIDOL
  11. SPORANOX [Concomitant]
     Active Substance: ITRACONAZOLE
  12. URSODIOL [Concomitant]
     Active Substance: URSODIOL
  13. ELECTROLYTES NOS [Concomitant]
     Active Substance: ELECTROLYTES NOS
  14. AMLODIPINE BESYLATE [Concomitant]
     Active Substance: AMLODIPINE BESYLATE
  15. PERINDOPRIL [Concomitant]
     Active Substance: PERINDOPRIL
  16. NADROPARIN CALCIUM [Concomitant]
     Active Substance: NADROPARIN CALCIUM

REACTIONS (1)
  - Rash maculo-papular [Recovering/Resolving]

NARRATIVE: CASE EVENT DATE: 20220216
